FAERS Safety Report 5968548-6 (Version None)
Quarter: 2008Q4

REPORT INFORMATION
  Report Type: 
  Country: None (occurrence: None)
  Receive Date: 20081126
  Receipt Date: 20081118
  Transmission Date: 20090506
  Serious: Yes (Other)
  Sender: FDA-Public Use
  Company Number: FR-SANOFI-SYNTHELABO-A02200803338

PATIENT
  Sex: Male

DRUGS (2)
  1. HEPARINE NOS [Concomitant]
     Indication: PHLEBITIS
     Dosage: UNK
     Route: 065
  2. PLAVIX [Suspect]
     Indication: DRUG USE FOR UNKNOWN INDICATION
     Dosage: UNK
     Route: 048

REACTIONS (3)
  - ASTHENIA [None]
  - PHLEBITIS [None]
  - PRODUCT COUNTERFEIT [None]
